FAERS Safety Report 11459734 (Version 1)
Quarter: 2015Q3

REPORT INFORMATION
  Report Type: Spontaneous
  Country: FR (occurrence: FR)
  Receive Date: 20150904
  Receipt Date: 20150904
  Transmission Date: 20151125
  Serious: Yes (Hospitalization)
  Sender: FDA-Public Use
  Company Number: FR-ASTRAZENECA-2015SE66809

PATIENT
  Age: 27497 Day
  Sex: Female

DRUGS (14)
  1. TAHOR [Suspect]
     Active Substance: ATORVASTATIN CALCIUM
     Route: 048
     Dates: end: 20150605
  2. PROGRAF [Concomitant]
     Active Substance: TACROLIMUS\TACROLIMUS ANHYDROUS
  3. UVEDOSE [Concomitant]
     Active Substance: CHOLECALCIFEROL
  4. SODIUM BICARBONATE. [Concomitant]
     Active Substance: SODIUM BICARBONATE
     Dosage: 1 GRAM DAILY IF NEED
  5. ATIVAN [Concomitant]
     Active Substance: LORAZEPAM
  6. TOPALGIC [Concomitant]
     Active Substance: TRAMADOL
     Dates: start: 20150604, end: 20150604
  7. AMLOR [Concomitant]
     Active Substance: AMLODIPINE BESYLATE
  8. PERFALGAN [Concomitant]
     Active Substance: ACETAMINOPHEN
  9. MOPRAL [Suspect]
     Active Substance: OMEPRAZOLE SODIUM
     Route: 048
     Dates: end: 20150605
  10. LEXOMIL [Concomitant]
     Active Substance: BROMAZEPAM
  11. TEMERIT [Concomitant]
     Active Substance: NEBIVOLOL
  12. EUPRESSYL [Concomitant]
     Active Substance: URAPIDIL
     Dosage: 30 MG IN THE MORNING AND 60 MG AT NIGHT
  13. CELLCEPT [Concomitant]
     Active Substance: MYCOPHENOLATE MOFETIL\MYCOPHENOLATE MOFETIL HYDROCHLORIDE
  14. TOPALGIC [Concomitant]
     Active Substance: TRAMADOL
     Dates: start: 20150427, end: 20150427

REACTIONS (4)
  - Balance disorder [Unknown]
  - Thrombocytopenia [Recovered/Resolved]
  - Norovirus test positive [Unknown]
  - Weight decreased [Unknown]

NARRATIVE: CASE EVENT DATE: 20150529
